FAERS Safety Report 24463334 (Version 1)
Quarter: 2024Q4

REPORT INFORMATION
  Report Type: Report from Study
  Country: US (occurrence: US)
  Receive Date: 20241018
  Receipt Date: 20241018
  Transmission Date: 20250115
  Serious: No
  Sender: ROCHE
  Company Number: US-ROCHE-2924382

PATIENT
  Age: 73 Year
  Sex: Male
  Weight: 66.2 kg

DRUGS (20)
  1. XOLAIR [Suspect]
     Active Substance: OMALIZUMAB
     Indication: Asthma
     Dosage: DATE OF SERVICES:08/OCT/2021, 29/OCT/2021, 12/NOV/2021, 03/DEC/2021, 17/DEC/2021, 07/JAN/2022, 25/FE
     Route: 058
     Dates: start: 202011
  2. XOLAIR [Suspect]
     Active Substance: OMALIZUMAB
  3. ALBUTEROL [Concomitant]
     Active Substance: ALBUTEROL
  4. AMLODIPINE [Concomitant]
     Active Substance: AMLODIPINE BESYLATE
  5. ASPIRIN [Concomitant]
     Active Substance: ASPIRIN
  6. CETIRIZINE HYDROCHLORIDE [Concomitant]
     Active Substance: CETIRIZINE HYDROCHLORIDE
  7. FERROUS SULFATE [Concomitant]
     Active Substance: FERROUS SULFATE
  8. FLUTICASONE [Concomitant]
     Active Substance: FLUTICASONE
  9. LISINOPRIL [Concomitant]
     Active Substance: LISINOPRIL
  10. LORAZEPAM [Concomitant]
     Active Substance: LORAZEPAM
  11. MONTELUKAST [Concomitant]
     Active Substance: MONTELUKAST
  12. OMEPRAZOLE [Concomitant]
     Active Substance: OMEPRAZOLE
  13. OXYBUTYNIN [Concomitant]
     Active Substance: OXYBUTYNIN
  14. TRAMADOL [Concomitant]
     Active Substance: TRAMADOL
  15. TIZANIDINE [Concomitant]
     Active Substance: TIZANIDINE
  16. TOPIRAMATE [Concomitant]
     Active Substance: TOPIRAMATE
  17. VITAMIN D3 [Concomitant]
     Active Substance: CHOLECALCIFEROL
  18. BREZTRI [Concomitant]
     Active Substance: BUDESONIDE\FORMOTEROL\GLYCOPYRROLATE
  19. FOLIC ACID [Concomitant]
     Active Substance: FOLIC ACID
  20. NICOTINE [Concomitant]
     Active Substance: NICOTINE

REACTIONS (15)
  - Productive cough [Not Recovered/Not Resolved]
  - Off label use [Unknown]
  - Arthralgia [Unknown]
  - Essential hypertension [Unknown]
  - Benign prostatic hyperplasia [Unknown]
  - Dysphonia [Unknown]
  - Neuropathy peripheral [Unknown]
  - Pulmonary mass [Unknown]
  - Pharyngeal swelling [Unknown]
  - Thyroid mass [Unknown]
  - Weight decreased [Unknown]
  - Decreased appetite [Unknown]
  - Viral infection [Unknown]
  - Fatigue [Unknown]
  - Bronchiectasis [Unknown]
